FAERS Safety Report 7408933-9 (Version None)
Quarter: 2011Q2

REPORT INFORMATION
  Report Type: 
  Country: None (occurrence: None)
  Receive Date: 20110407
  Receipt Date: 20110407
  Transmission Date: 20111010
  Serious: No
  Sender: FDA-Public Use
  Company Number: None

PATIENT
  Age: 55 Year
  Sex: Female

DRUGS (5)
  1. SOMA [Suspect]
  2. TYLENOL ALLERGY SINUS [Concomitant]
  3. GAMMAGARD [Suspect]
     Indication: CHRONIC INFLAMMATORY DEMYELINATING POLYRADICULONEUROPATHY
     Dosage: 20G Q 4WKS IV
     Route: 042
     Dates: start: 20110301
  4. GABAPENTIN [Concomitant]
  5. LORTAB [Concomitant]

REACTIONS (5)
  - HEADACHE [None]
  - NAUSEA [None]
  - CHILLS [None]
  - INFUSION RELATED REACTION [None]
  - VOMITING [None]
